FAERS Safety Report 4565844-4 (Version None)
Quarter: 2005Q1

REPORT INFORMATION
  Report Type: 
  Country: None (occurrence: None)
  Receive Date: 20050131
  Receipt Date: 20050121
  Transmission Date: 20050727
  Serious: Yes (Hospitalization)
  Sender: FDA-Public Use
  Company Number: FR-ABBOTT-05P-056-0288054-00

PATIENT
  Age: 47 Year
  Sex: Female

DRUGS (2)
  1. SIBUTRAL [Suspect]
     Indication: DRUG USE FOR UNKNOWN INDICATION
     Route: 048
     Dates: start: 20041227
  2. ETHINYLESTRADIOL W/LEVONORGESTREL [Suspect]
     Indication: CONTRACEPTION
     Route: 048
     Dates: start: 20041201

REACTIONS (1)
  - PULMONARY EMBOLISM [None]
